FAERS Safety Report 9477485 (Version 1)
Quarter: 2013Q3

REPORT INFORMATION
  Report Type: Spontaneous
  Country: CH (occurrence: CH)
  Receive Date: 20130827
  Receipt Date: 20130827
  Transmission Date: 20140515
  Serious: Yes (Life-Threatening, Hospitalization, Disabling)
  Sender: FDA-Public Use
  Company Number: CH-ABBOTT-13X-151-1136712-00

PATIENT
  Age: 18 Year
  Sex: Female
  Weight: 75 kg

DRUGS (4)
  1. KLACID [Suspect]
     Indication: PNEUMONIA BACTERIAL
     Dates: start: 20130330, end: 20130402
  2. TAVANIC [Suspect]
     Indication: PNEUMONIA BACTERIAL
     Dates: start: 20130325, end: 20130330
  3. METAMIZOLE SODIUM [Suspect]
     Indication: PRODUCT USED FOR UNKNOWN INDICATION
     Dates: start: 20130330, end: 20130403
  4. ESOMEPRAZOLE [Suspect]
     Indication: PRODUCT USED FOR UNKNOWN INDICATION
     Route: 042
     Dates: start: 20130330, end: 20130403

REACTIONS (12)
  - Eosinophilic myocarditis [Not Recovered/Not Resolved]
  - Drug reaction with eosinophilia and systemic symptoms [Not Recovered/Not Resolved]
  - Ventricular dysfunction [Not Recovered/Not Resolved]
  - Eczema [Unknown]
  - Dermatitis atopic [Unknown]
  - Dermatitis allergic [Unknown]
  - Alanine aminotransferase increased [Unknown]
  - Renal failure acute [Recovered/Resolved]
  - Cardiogenic shock [Unknown]
  - Malaise [Unknown]
  - Arthralgia [Unknown]
  - Aspartate aminotransferase increased [Unknown]
